FAERS Safety Report 5014478-6 (Version None)
Quarter: 2006Q2

REPORT INFORMATION
  Report Type: 
  Country: None (occurrence: None)
  Receive Date: 20060531
  Receipt Date: 20060522
  Transmission Date: 20061013
  Serious: Yes (Other)
  Sender: FDA-Public Use
  Company Number: US-JNJFOC-20060505155

PATIENT
  Age: 82 Year
  Sex: Female

DRUGS (3)
  1. RISPERDAL [Suspect]
     Indication: PARANOIA
     Route: 048
  2. NAMENDA [Concomitant]
  3. ARICEPT [Concomitant]

REACTIONS (4)
  - COGNITIVE DETERIORATION [None]
  - DEMENTIA [None]
  - PSYCHOTIC DISORDER [None]
  - TREMOR [None]
